FAERS Safety Report 8599712 (Version 3)
Quarter: 2012Q4

REPORT INFORMATION
  Report Type: 
  Country: NO (occurrence: NO)
  Receive Date: 20120605
  Receipt Date: 20120828
  Transmission Date: 20130627
  Serious: Yes (Death, Other)
  Sender: FDA-Public Use
  Company Number: NO-JNJFOC-20120600309

PATIENT
  Age: 49 Year
  Sex: Male

DRUGS (11)
  1. DOXORUBICIN [Suspect]
     Indication: HODGKIN^S DISEASE
     Dosage: for escalated cycles on day 1
     Route: 042
  2. DOXORUBICIN [Suspect]
     Indication: HODGKIN^S DISEASE
     Dosage: on day 1,for standard cycles
     Route: 042
  3. VINCRISTINE [Suspect]
     Indication: HODGKIN^S DISEASE
     Dosage: on day 8
     Route: 042
  4. ETOPOSIDE [Suspect]
     Indication: HODGKIN^S DISEASE
     Dosage: for the standard cycles, day 1 to 3
     Route: 042
  5. ETOPOSIDE [Suspect]
     Indication: HODGKIN^S DISEASE
     Dosage: for the escalated cycles on day 1 to 3
     Route: 042
  6. ETOPOSIDE [Suspect]
     Indication: HODGKIN^S DISEASE
     Dosage: for the escalated cycles on day 1 to 3
     Route: 042
  7. BLEOMYCIN [Suspect]
     Indication: HODGKIN^S DISEASE
     Dosage: on day 8
     Route: 042
  8. CYCLOPHOSPHAMIDE [Suspect]
     Indication: HODGKIN^S DISEASE
     Dosage: for escalated cycles on day 1
     Route: 042
  9. CYCLOPHOSPHAMIDE [Suspect]
     Indication: HODGKIN^S DISEASE
     Dosage: for standard cycles on day 1
     Route: 042
  10. PROCARBAZINE [Suspect]
     Indication: HODGKIN^S DISEASE
     Dosage: day 1 to 7
     Route: 048
  11. PREDNISOLONE [Suspect]
     Indication: HODGKIN^S DISEASE
     Dosage: on day 1 to 14 every 21 day cycle treatment for 6 cycles
     Route: 048

REACTIONS (7)
  - Septic shock [Fatal]
  - Infection [Fatal]
  - Pyrexia [Unknown]
  - Lung infiltration [Unknown]
  - Bone marrow failure [Unknown]
  - Pneumocystis jiroveci pneumonia [Recovered/Resolved]
  - Haematotoxicity [None]
